FAERS Safety Report 6526861-8 (Version None)
Quarter: 2010Q1

REPORT INFORMATION
  Report Type: 
  Country: None (occurrence: None)
  Receive Date: 20100105
  Receipt Date: 20091223
  Transmission Date: 20100710
  Serious: Yes (Other)
  Sender: FDA-Public Use
  Company Number: PHEH2009US17831

PATIENT
  Age: 54 Year
  Sex: Female

DRUGS (2)
  1. TEKTURNA HCT [Suspect]
     Indication: HYPERTENSION
     Dosage: 150/UNK MG, UNK
     Route: 048
  2. ANTIHYPERTENSIVES [Concomitant]
     Indication: HYPERTENSION

REACTIONS (3)
  - BLOOD PRESSURE INCREASED [None]
  - CARDIOMEGALY [None]
  - DRUG INEFFECTIVE [None]
